FAERS Safety Report 22040247 (Version 1)
Quarter: 2023Q1

REPORT INFORMATION
  Report Type: Spontaneous
  Country: US (occurrence: US)
  Receive Date: 20230227
  Receipt Date: 20230227
  Transmission Date: 20230418
  Serious: No
  Sender: FDA-Public Use
  Company Number: US-PFIZER INC-PV202300035558

PATIENT
  Sex: Female

DRUGS (1)
  1. MORPHINE SULFATE [Suspect]
     Active Substance: MORPHINE SULFATE
     Dosage: UNK

REACTIONS (5)
  - Drug hypersensitivity [Unknown]
  - Abdominal pain [Unknown]
  - Cold sweat [Unknown]
  - Nausea [Unknown]
  - Dizziness [Unknown]
